FAERS Safety Report 17724803 (Version 6)
Quarter: 2021Q2

REPORT INFORMATION
  Report Type: Spontaneous
  Country: PL (occurrence: PL)
  Receive Date: 20200429
  Receipt Date: 20210506
  Transmission Date: 20210716
  Serious: Yes (Hospitalization, Other)
  Sender: FDA-Public Use
  Company Number: NVSC2020PL111463

PATIENT
  Age: 56 Year
  Sex: Female

DRUGS (25)
  1. METHYLPREDNISOLONE. [Suspect]
     Active Substance: METHYLPREDNISOLONE
     Indication: PNEUMONIA MYCOPLASMAL
     Dosage: UNK
     Route: 042
  2. CIPROFLOXACIN. [Suspect]
     Active Substance: CIPROFLOXACIN
     Indication: PNEUMONIA
     Dosage: UNK
     Route: 042
  3. HYDROKSYETYLOSKROBIA [Concomitant]
     Indication: PRODUCT USED FOR UNKNOWN INDICATION
     Dosage: UNK
     Route: 065
  4. ENOXAPARIN [Suspect]
     Active Substance: ENOXAPARIN
     Indication: HYPOKALAEMIA
  5. FUROSEMIDE. [Suspect]
     Active Substance: FUROSEMIDE
     Indication: OEDEMA PERIPHERAL
     Dosage: UNK
     Route: 065
  6. CEFUROXIME. [Suspect]
     Active Substance: CEFUROXIME
     Indication: OTITIS MEDIA ACUTE
     Dosage: UNK
     Route: 065
  7. OMEPRAZOLE. [Suspect]
     Active Substance: OMEPRAZOLE
     Indication: PNEUMONIA MYCOPLASMAL
     Dosage: UNK
     Route: 042
  8. POTASSIUM CHLORIDE. [Suspect]
     Active Substance: POTASSIUM CHLORIDE
     Indication: HYPOKALAEMIA
  9. PENTOXIFYLLINE. [Suspect]
     Active Substance: PENTOXIFYLLINE
     Indication: PNEUMONIA MYCOPLASMAL
     Dosage: UNK
     Route: 042
  10. HYDROXYETHYL STARCH [Suspect]
     Active Substance: HETASTARCH
     Indication: PNEUMONIA MYCOPLASMAL
     Dosage: UNK
     Route: 065
  11. CO?CARBOXYLASE [Suspect]
     Active Substance: COCARBOXYLASE
     Indication: DEAFNESS BILATERAL
  12. DEXAMETHASONE. [Suspect]
     Active Substance: DEXAMETHASONE
     Indication: OTITIS MEDIA ACUTE
     Dosage: UNK
     Route: 065
  13. LIGNOCAINE [Suspect]
     Active Substance: LIDOCAINE HYDROCHLORIDE
     Indication: OTITIS MEDIA ACUTE
     Dosage: UNK
     Route: 065
  14. CLARITHROMYCIN. [Suspect]
     Active Substance: CLARITHROMYCIN
     Indication: PNEUMONIA MYCOPLASMAL
     Dosage: UNK
     Route: 042
  15. CLARITHROMYCIN. [Suspect]
     Active Substance: CLARITHROMYCIN
     Indication: OTITIS MEDIA ACUTE
  16. CLARITHROMYCIN. [Suspect]
     Active Substance: CLARITHROMYCIN
     Indication: PNEUMONIA
  17. FUROSEMIDE. [Suspect]
     Active Substance: FUROSEMIDE
     Indication: HYPOKALAEMIA
  18. OXYGEN. [Concomitant]
     Active Substance: OXYGEN
     Indication: PRODUCT USED FOR UNKNOWN INDICATION
     Dosage: 2.5 ATA, 3 X 20MIN, 15 SESSIONS
     Route: 065
  19. AMOXICILLIN. [Suspect]
     Active Substance: AMOXICILLIN
     Indication: UPPER RESPIRATORY TRACT INFECTION
     Dosage: UNK
     Route: 065
  20. ENOXAPARIN [Suspect]
     Active Substance: ENOXAPARIN
     Indication: OEDEMA PERIPHERAL
     Dosage: UNK
     Route: 065
  21. CO?CARBOXYLASE [Suspect]
     Active Substance: COCARBOXYLASE
     Indication: OTITIS MEDIA ACUTE
     Dosage: UNK
     Route: 065
  22. KETOCONAZOLE. [Suspect]
     Active Substance: KETOCONAZOLE
     Indication: OTITIS MEDIA ACUTE
     Dosage: UNK
     Route: 042
  23. POTASSIUM CHLORIDE. [Suspect]
     Active Substance: POTASSIUM CHLORIDE
     Indication: OEDEMA PERIPHERAL
     Dosage: UNK
     Route: 065
  24. CEFTRIAXONE DISODIUM [Suspect]
     Active Substance: CEFTRIAXONE
     Indication: PNEUMONIA
     Dosage: UNK
     Route: 042
  25. HAES [Suspect]
     Active Substance: HETASTARCH
     Indication: PNEUMONIA MYCOPLASMAL
     Dosage: UNK
     Route: 042

REACTIONS (12)
  - Pneumonia mycoplasmal [Recovering/Resolving]
  - Deafness bilateral [Recovering/Resolving]
  - Oedema peripheral [Unknown]
  - Otitis media acute [Recovering/Resolving]
  - Dizziness [Unknown]
  - Off label use [Unknown]
  - Drug ineffective [Unknown]
  - Vertigo [Unknown]
  - Hypokalaemia [Unknown]
  - Pneumonia [Unknown]
  - Electrolyte imbalance [Unknown]
  - Product use in unapproved indication [Unknown]
